FAERS Safety Report 6347016-6 (Version None)
Quarter: 2009Q3

REPORT INFORMATION
  Report Type: 
  Country: None (occurrence: None)
  Receive Date: 20090909
  Receipt Date: 20090909
  Transmission Date: 20100115
  Serious: Yes (Other)
  Sender: FDA-Public Use
  Company Number: None

PATIENT
  Age: 34 Year
  Sex: Female
  Weight: 102.0593 kg

DRUGS (2)
  1. YASMIN [Suspect]
     Indication: ACNE
     Dosage: 3MG DAILY PO
     Route: 048
     Dates: start: 20090121, end: 20090823
  2. YASMIN [Suspect]
     Indication: MENSTRUATION IRREGULAR
     Dosage: 3MG DAILY PO
     Route: 048
     Dates: start: 20090121, end: 20090823

REACTIONS (2)
  - BILE DUCT OBSTRUCTION [None]
  - CHOLECYSTITIS [None]
